FAERS Safety Report 11544020 (Version 2)
Quarter: 2015Q4

REPORT INFORMATION
  Report Type: Spontaneous
  Country: TT (occurrence: TT)
  Receive Date: 20150924
  Receipt Date: 20151002
  Transmission Date: 20160304
  Serious: Yes (Other)
  Sender: FDA-Public Use
  Company Number: TT-ASTRAZENECA-2015SE91693

PATIENT
  Age: 62 Year
  Sex: Female
  Weight: 107.5 kg

DRUGS (19)
  1. BYETTA [Suspect]
     Active Substance: EXENATIDE
     Indication: TYPE 2 DIABETES MELLITUS
     Dosage: TWO TIMES A DAY
     Route: 058
     Dates: start: 201507, end: 201509
  2. SITAGLIPTIN [Concomitant]
     Active Substance: SITAGLIPTIN
     Dosage: 50-100MGS
  3. INSULIN [Concomitant]
     Active Substance: INSULIN NOS
     Dosage: 16/10/8 UNITS
  4. CLOPIDOGREL [Concomitant]
     Active Substance: CLOPIDOGREL BISULFATE
     Indication: ECHOCARDIOGRAM ABNORMAL
  5. ACTOS [Concomitant]
     Active Substance: PIOGLITAZONE HYDROCHLORIDE
     Route: 058
  6. CANDESARTAN [Concomitant]
     Active Substance: CANDESARTAN
     Indication: HYPERTENSION
  7. METFORMIN [Concomitant]
     Active Substance: METFORMIN HYDROCHLORIDE
     Dates: start: 2010
  8. METFORMIN [Concomitant]
     Active Substance: METFORMIN HYDROCHLORIDE
     Dates: start: 2010
  9. ASPIRIN. [Concomitant]
     Active Substance: ASPIRIN
     Indication: ECHOCARDIOGRAM ABNORMAL
     Dates: start: 2015
  10. RANITIDINE [Concomitant]
     Active Substance: RANITIDINE\RANITIDINE HYDROCHLORIDE
     Indication: GASTROOESOPHAGEAL REFLUX DISEASE
  11. METFORMIN [Concomitant]
     Active Substance: METFORMIN HYDROCHLORIDE
     Dosage: MAXIMAL DOSE
  12. SITAGLIPTIN [Concomitant]
     Active Substance: SITAGLIPTIN
     Dosage: 50-100MGS
     Dates: start: 2015
  13. QUINE SULPHATE [Concomitant]
     Indication: RESTLESS LEGS SYNDROME
     Dosage: 200-300 MGS
     Dates: start: 2012
  14. ACTOS [Concomitant]
     Active Substance: PIOGLITAZONE HYDROCHLORIDE
     Dates: start: 2014
  15. AMARYL [Concomitant]
     Active Substance: GLIMEPIRIDE
  16. INSULIN [Concomitant]
     Active Substance: INSULIN NOS
     Dosage: 12/6/6 UNITS
  17. INSULIN [Concomitant]
     Active Substance: INSULIN NOS
     Dosage: 20/8/6 UNITS
  18. BYETTA [Suspect]
     Active Substance: EXENATIDE
     Indication: TYPE 2 DIABETES MELLITUS
     Route: 058
     Dates: start: 2015
  19. SIMVASTATIN. [Concomitant]
     Active Substance: SIMVASTATIN
     Indication: HYPERCHOLESTEROLAEMIA

REACTIONS (12)
  - Angina pectoris [Unknown]
  - Chest discomfort [Unknown]
  - Blood glucose increased [Recovering/Resolving]
  - Weight decreased [Unknown]
  - Blood glucose decreased [Unknown]
  - Cataract [Unknown]
  - Dyspnoea [Unknown]
  - Hilar lymphadenopathy [Unknown]
  - Dyspnoea [Unknown]
  - Lymphadenopathy mediastinal [Unknown]
  - Nausea [Unknown]
  - Drug dose omission [Unknown]

NARRATIVE: CASE EVENT DATE: 201505
